FAERS Safety Report 4278062-4 (Version None)
Quarter: 2004Q1

REPORT INFORMATION
  Report Type: 
  Country: None (occurrence: None)
  Receive Date: 20040121
  Receipt Date: 20030319
  Transmission Date: 20041129
  Serious: Yes (Hospitalization)
  Sender: FDA-Public Use
  Company Number: 2003-03-1831

PATIENT
  Age: 20 Year
  Sex: Male

DRUGS (1)
  1. SUBUTEX [Suspect]
     Dosage: 4MG QD SUBLINGUAL
     Route: 060

REACTIONS (2)
  - CEREBROVASCULAR ACCIDENT [None]
  - HEMIPLEGIA [None]
